FAERS Safety Report 16395167 (Version 1)
Quarter: 2019Q2

REPORT INFORMATION
  Report Type: Spontaneous
  Country: US (occurrence: US)
  Receive Date: 20190605
  Receipt Date: 20190605
  Transmission Date: 20190711
  Serious: No
  Sender: FDA-Public Use
  Company Number: US-BIOGEN-2019BI00747654

PATIENT
  Sex: Female
  Weight: 92.62 kg

DRUGS (3)
  1. PLEGRIDY [Suspect]
     Active Substance: PEGINTERFERON BETA-1A
     Indication: MULTIPLE SCLEROSIS
     Route: 058
  2. PREDNISONE. [Concomitant]
     Active Substance: PREDNISONE
     Route: 065
  3. SPORANOX [Concomitant]
     Active Substance: ITRACONAZOLE
     Route: 065

REACTIONS (2)
  - Weight decreased [Unknown]
  - Pain [Unknown]
